FAERS Safety Report 23968982 (Version 3)
Quarter: 2025Q2

REPORT INFORMATION
  Report Type: Spontaneous
  Country: JP (occurrence: JP)
  Receive Date: 20240612
  Receipt Date: 20250423
  Transmission Date: 20250716
  Serious: Yes (Hospitalization)
  Sender: EISAI
  Company Number: JP-Eisai-202213969_LEN-RCC_P_1

PATIENT
  Age: 77 Year
  Sex: Male

DRUGS (14)
  1. LENVIMA [Suspect]
     Active Substance: LENVATINIB
     Indication: Renal cell carcinoma
  2. LENVIMA [Suspect]
     Active Substance: LENVATINIB
  3. LENVIMA [Suspect]
     Active Substance: LENVATINIB
  4. LENVIMA [Suspect]
     Active Substance: LENVATINIB
  5. LENVIMA [Suspect]
     Active Substance: LENVATINIB
  6. LENVIMA [Suspect]
     Active Substance: LENVATINIB
     Dates: start: 202504
  7. KEYTRUDA [Suspect]
     Active Substance: PEMBROLIZUMAB
     Indication: Renal cell carcinoma
     Dosage: 7 CYCLES
  8. NAPROXEN [Concomitant]
     Active Substance: NAPROXEN
     Indication: Product used for unknown indication
  9. NAPROXEN [Concomitant]
     Active Substance: NAPROXEN
  10. NAPROXEN [Concomitant]
     Active Substance: NAPROXEN
  11. NAPROXEN [Concomitant]
     Active Substance: NAPROXEN
  12. LEVOTHYROXINE SODIUM [Concomitant]
     Active Substance: LEVOTHYROXINE SODIUM
     Indication: Product used for unknown indication
  13. LEVOTHYROXINE SODIUM [Concomitant]
     Active Substance: LEVOTHYROXINE SODIUM
  14. LEVOTHYROXINE SODIUM [Concomitant]
     Active Substance: LEVOTHYROXINE SODIUM

REACTIONS (10)
  - Pyrexia [Unknown]
  - Delirium [Unknown]
  - Decreased appetite [Unknown]
  - Hypertension [Unknown]
  - Palmar-plantar erythrodysaesthesia syndrome [Unknown]
  - C-reactive protein increased [Unknown]
  - Blood thyroid stimulating hormone increased [Unknown]
  - Proteinuria [Unknown]
  - Headache [Unknown]
  - Weight increased [Unknown]
